FAERS Safety Report 4558211-0 (Version None)
Quarter: 2005Q1

REPORT INFORMATION
  Report Type: 
  Country: None (occurrence: None)
  Receive Date: 20050103
  Receipt Date: 20041025
  Transmission Date: 20050727
  Serious: Yes (Other)
  Sender: FDA-Public Use
  Company Number: 2004UW22114

PATIENT
  Age: 58 Year
  Sex: Male
  Weight: 104.32 kg

DRUGS (6)
  1. CRESTOR [Suspect]
     Dosage: 10 MG PO
     Route: 048
  2. CRESTOR [Suspect]
     Dosage: 10 MG PO
     Route: 048
  3. GLIPIZIDE [Concomitant]
  4. AVANDIA [Concomitant]
  5. LISINOPRIL [Concomitant]
  6. PROPRANOLOL HYDROCHLORIDE [Concomitant]

REACTIONS (2)
  - HYPOAESTHESIA [None]
  - PAIN IN EXTREMITY [None]
